FAERS Safety Report 16421404 (Version 1)
Quarter: 2019Q2

REPORT INFORMATION
  Report Type: Spontaneous
  Country: US (occurrence: US)
  Receive Date: 20190506
  Receipt Date: 20190506
  Transmission Date: 20190711
  Serious: No
  Sender: FDA-Public Use
  Company Number: None

PATIENT
  Age: 24 Month
  Sex: Female

DRUGS (1)
  1. KALYDECO [Suspect]
     Active Substance: IVACAFTOR
     Route: 048
     Dates: start: 20190321

REACTIONS (3)
  - Impaired gastric emptying [None]
  - Discomfort [None]
  - Abdominal discomfort [None]

NARRATIVE: CASE EVENT DATE: 20190506
